FAERS Safety Report 5103526-0 (Version None)
Quarter: 2006Q3

REPORT INFORMATION
  Report Type: 
  Country: None (occurrence: None)
  Receive Date: 20060913
  Receipt Date: 20060830
  Transmission Date: 20061208
  Serious: Yes (Hospitalization, Other)
  Sender: FDA-Public Use
  Company Number: US-JNJFOC-20060105220

PATIENT
  Sex: Female
  Weight: 101.74 kg

DRUGS (2)
  1. ORTHO EVRA [Suspect]
     Indication: CONTRACEPTION
     Route: 062
  2. IMITREX [Concomitant]
     Indication: MIGRAINE

REACTIONS (5)
  - ENTEROCOLITIS [None]
  - PANCREATITIS [None]
  - PORTAL VEIN THROMBOSIS [None]
  - PYODERMA [None]
  - SPLENIC CYST [None]
